FAERS Safety Report 8976242 (Version 2)
Quarter: 2014Q2

REPORT INFORMATION
  Report Type: Spontaneous
  Country: US (occurrence: US)
  Receive Date: 20121220
  Receipt Date: 20131018
  Transmission Date: 20141212
  Serious: Yes (Other)
  Sender: FDA-Public Use
  Company Number: US-PFIZER INC-2012312058

PATIENT
  Age: 44 Year
  Sex: Female
  Weight: 63.49 kg

DRUGS (13)
  1. METHOTREXATE SODIUM [Suspect]
     Indication: RHEUMATOID ARTHRITIS
     Dosage: UNK
     Dates: start: 201209
  2. EPINEPHRINE [Suspect]
     Dosage: UNK
  3. LIDOCAINE HCL [Suspect]
     Dosage: 0.3%
     Dates: start: 20120411
  4. RESTYLANE [Suspect]
     Dosage: 0.5 ML INJECTION TO THE TEAR TROUGHS ON EACH SIDE
     Dates: start: 20120411
  5. PLAQUENIL [Suspect]
     Indication: RHEUMATOID ARTHRITIS
     Dosage: UNK
     Dates: start: 201209
  6. PREDNISONE [Suspect]
     Indication: RHEUMATOID ARTHRITIS
     Dosage: 5 MG, 1X/DAY
  7. AMBIEN [Concomitant]
     Indication: SLEEP DISORDER
     Dosage: AS NEEDED AT NIGHT
  8. CELEBREX [Concomitant]
     Dosage: UNK
  9. VITAMIN D [Concomitant]
     Dosage: UNK
  10. FISH OIL [Concomitant]
     Dosage: UNK
  11. CALCIUM [Concomitant]
     Dosage: UNK
  12. MAGNESIUM [Concomitant]
     Dosage: UNK
  13. VITAMIN B12 [Concomitant]
     Dosage: UNK

REACTIONS (4)
  - Rheumatoid arthritis [Unknown]
  - Eyelid oedema [Recovering/Resolving]
  - Erythema of eyelid [Recovering/Resolving]
  - Soft tissue disorder [Unknown]
